FAERS Safety Report 6120557-2 (Version None)
Quarter: 2009Q1

REPORT INFORMATION
  Report Type: 
  Country: None (occurrence: None)
  Receive Date: 20090312
  Receipt Date: 20090224
  Transmission Date: 20090719
  Serious: Yes (Hospitalization)
  Sender: FDA-Public Use
  Company Number: PPC200900021

PATIENT
  Age: 76 Year
  Sex: Female

DRUGS (4)
  1. ACYCLOVIR [Suspect]
     Indication: RASH
     Dosage: 12 MG/KG, 3 IN 1 D; INTRAVENOUS
     Route: 042
  2. PERINDOPRIL ERBUMINE [Concomitant]
  3. METFORMIN HCL [Concomitant]
  4. ALENDRONATE SODIUM [Concomitant]

REACTIONS (2)
  - HYPONATRAEMIA [None]
  - INAPPROPRIATE ANTIDIURETIC HORMONE SECRETION [None]
